FAERS Safety Report 19090100 (Version 2)
Quarter: 2021Q4

REPORT INFORMATION
  Report Type: Spontaneous
  Country: US (occurrence: US)
  Receive Date: 20210404
  Receipt Date: 20211229
  Transmission Date: 20220303
  Serious: Yes (Other)
  Sender: FDA-Public Use
  Company Number: US-TEVA-2021-US-1896735

PATIENT
  Sex: Male

DRUGS (3)
  1. AMLODIPINE\VALSARTAN [Suspect]
     Active Substance: AMLODIPINE\VALSARTAN
     Indication: Hypertension
     Dosage: 1 DOSAGE FORMS DAILY; DOSE: 10/320 MG
     Route: 048
     Dates: start: 201608, end: 201608
  2. HYDROCHLOROTHIAZIDE\VALSARTAN [Suspect]
     Active Substance: HYDROCHLOROTHIAZIDE\VALSARTAN
     Indication: Hypertension
     Dosage: 1 DOSAGE FORMS DAILY; DOSE: 5/160 MG
     Route: 048
     Dates: start: 201511, end: 201604
  3. HYDROCHLOROTHIAZIDE\VALSARTAN [Suspect]
     Active Substance: HYDROCHLOROTHIAZIDE\VALSARTAN
     Dosage: 1 DOSAGE FORMS DAILY; DOSE: 10/320 MG
     Route: 048
     Dates: start: 201611, end: 201808

REACTIONS (1)
  - Colorectal cancer [Unknown]
